FAERS Safety Report 9827415 (Version 3)
Quarter: 2014Q2

REPORT INFORMATION
  Report Type: Spontaneous
  Country: US (occurrence: US)
  Receive Date: 20140117
  Receipt Date: 20140619
  Transmission Date: 20141212
  Serious: Yes (Death, Hospitalization)
  Sender: FDA-Public Use
  Company Number: US-B.I. PHARMACEUTICALS,INC./RIDGEFIELD-2014-BI-02021BP

PATIENT
  Age: 60 Year
  Sex: Male

DRUGS (21)
  1. PRADAXA [Suspect]
     Indication: CEREBROVASCULAR ACCIDENT PROPHYLAXIS
     Dosage: 300 MG
     Route: 048
     Dates: start: 201106
  2. PRADAXA [Suspect]
     Indication: ATRIAL FIBRILLATION
  3. SPIRIVA [Suspect]
     Indication: CHRONIC OBSTRUCTIVE PULMONARY DISEASE
     Dosage: 18 MCG
     Route: 055
     Dates: start: 201107
  4. SPIRONOLACTONE [Concomitant]
     Route: 048
  5. REVATIO [Concomitant]
     Indication: PULMONARY HYPERTENSION
     Route: 048
  6. AMIODARONE [Concomitant]
     Indication: ATRIAL FIBRILLATION
     Route: 048
  7. OMEPRAZOLE [Concomitant]
     Route: 048
  8. NYSTATIN [Concomitant]
     Dosage: FORMULATION: ORAL SUSPENSION
     Route: 048
  9. CLARITIN [Concomitant]
     Route: 048
  10. LEVOTHYROXINE [Concomitant]
     Route: 048
  11. POTASSIUM [Concomitant]
     Route: 048
  12. VENTAVIS [Concomitant]
     Route: 055
  13. GUAIFENESIN [Concomitant]
     Dosage: FORMULATION: CAPLET
     Route: 048
  14. FUROSEMIDE [Concomitant]
     Route: 048
  15. FOLIC ACID [Concomitant]
     Route: 048
  16. ADVAIR [Concomitant]
     Route: 055
  17. FERROUS SULFATE [Concomitant]
     Route: 048
  18. DILTIAZEM CD [Concomitant]
     Route: 048
  19. CIPROFLOXACIN [Concomitant]
     Route: 048
  20. ALBUTEROL [Concomitant]
     Route: 055
  21. ACETAMINOPHEN [Concomitant]
     Route: 048

REACTIONS (1)
  - Respiratory failure [Fatal]
